FAERS Safety Report 15033921 (Version 1)
Quarter: 2018Q2

REPORT INFORMATION
  Report Type: Other
  Country: KR (occurrence: KR)
  Receive Date: 20180620
  Receipt Date: 20180620
  Transmission Date: 20180711
  Serious: Yes (Life-Threatening, Hospitalization, Other)
  Sender: FDA-Public Use
  Company Number: KR-DENTSPLY-2018SCDP000211

PATIENT
  Age: 3 Year
  Sex: Female

DRUGS (1)
  1. LIDOCAINE AND PRILOCAINE [Suspect]
     Active Substance: LIDOCAINE\PRILOCAINE
     Indication: ANAESTHESIA
     Dosage: 30 G, EUTECTIC MIXTURE OF 2.5% LIDOCAINE AND 2.5% PRILOCAINE
     Route: 061

REACTIONS (4)
  - Respiratory depression [Recovered/Resolved]
  - Methaemoglobinaemia [Recovered/Resolved]
  - Generalised tonic-clonic seizure [Recovered/Resolved]
  - Neurotoxicity [Recovered/Resolved]
